FAERS Safety Report 5335913-X (Version None)
Quarter: 2007Q2

REPORT INFORMATION
  Report Type: 
  Country: None (occurrence: None)
  Receive Date: 20070302
  Receipt Date: 20061205
  Transmission Date: 20071010
  Serious: No
  Sender: FDA-Public Use
  Company Number: PHEH2006US01567

PATIENT
  Age: 27 Year
  Sex: Female
  Weight: 60 kg

DRUGS (4)
  1. EXJADE [Suspect]
     Indication: BLOOD IRON INCREASED
     Dosage: 40 MG, QD, ORAL
     Route: 048
     Dates: start: 20060301, end: 20060501
  2. PENICILLIN VK [Concomitant]
  3. ANALGESICS (NO INGREDIENTS/SUBSTANCES) [Concomitant]
  4. IBUPROFEN [Concomitant]

REACTIONS (5)
  - DRUG EXPOSURE DURING PREGNANCY [None]
  - NORMAL DELIVERY [None]
  - NORMAL NEWBORN [None]
  - SICKLE CELL TRAIT [None]
  - TUBAL LIGATION [None]
